FAERS Safety Report 8297423-X (Version None)
Quarter: 2012Q2

REPORT INFORMATION
  Report Type: 
  Country: None (occurrence: None)
  Receive Date: 20120419
  Receipt Date: 20120416
  Transmission Date: 20120825
  Serious: Yes (Other)
  Sender: FDA-Public Use
  Company Number: US-PFIZER INC-2012094203

PATIENT
  Sex: Female
  Weight: 67.12 kg

DRUGS (7)
  1. FENOFIBRATE [Concomitant]
     Dosage: 48 MG, DAILY
  2. ACETYLSALICYLIC ACID [Concomitant]
     Dosage: 81 MG, UNK
  3. SIMVASTATIN [Concomitant]
     Indication: BLOOD CHOLESTEROL INCREASED
     Dosage: 80 MG, DAILY
  4. METOPROLOL [Concomitant]
     Indication: HYPERTENSION
     Dosage: 25 MG, DAILY
  5. PREMARIN [Suspect]
     Indication: HORMONE THERAPY
     Dosage: 1.25 MG, DAILY
     Route: 048
     Dates: start: 19710101, end: 20120319
  6. ZOLPIDEM [Concomitant]
     Indication: SLEEP DISORDER
     Dosage: 10 MG, DAILY
  7. FIBERCON [Concomitant]
     Dosage: UNK

REACTIONS (1)
  - AORTIC ANEURYSM RUPTURE [None]
